FAERS Safety Report 13263309 (Version 1)
Quarter: 2017Q1

REPORT INFORMATION
  Report Type: Spontaneous
  Country: FI (occurrence: FI)
  Receive Date: 20170223
  Receipt Date: 20170223
  Transmission Date: 20170428
  Serious: Yes (Other)
  Sender: FDA-Public Use
  Company Number: FI-UCBSA-2016040445

PATIENT
  Sex: Female

DRUGS (2)
  1. CIMZIA [Suspect]
     Active Substance: CERTOLIZUMAB PEGOL
     Dosage: 200 MG, EV 2 WEEKS(QOW)
     Dates: start: 201610
  2. CIMZIA [Suspect]
     Active Substance: CERTOLIZUMAB PEGOL
     Indication: ANKYLOSING SPONDYLITIS
     Dosage: 400 MG, EV 2 WEEKS(QOW) X 3
     Dates: start: 20160908, end: 20161007

REACTIONS (2)
  - Exposure during pregnancy [Unknown]
  - Caesarean section [Unknown]

NARRATIVE: CASE EVENT DATE: 20160908
